FAERS Safety Report 4652413-0 (Version None)
Quarter: 2005Q2

REPORT INFORMATION
  Report Type: 
  Country: None (occurrence: None)
  Receive Date: 20050504
  Receipt Date: 20050425
  Transmission Date: 20051028
  Serious: Yes (Other)
  Sender: FDA-Public Use
  Company Number: DK-MERCK-0505DNK00001

PATIENT
  Age: 53 Year
  Sex: Male

DRUGS (2)
  1. VIOXX [Suspect]
     Route: 048
     Dates: start: 20041018
  2. ETODOLAC [Suspect]
     Route: 048
     Dates: start: 20041018

REACTIONS (2)
  - DIZZINESS [None]
  - VISUAL DISTURBANCE [None]
